FAERS Safety Report 7074398-2 (Version None)
Quarter: 2010Q4

REPORT INFORMATION
  Report Type: 
  Country: None (occurrence: None)
  Receive Date: 20101029
  Receipt Date: 20101021
  Transmission Date: 20110411
  Serious: Yes (Death)
  Sender: FDA-Public Use
  Company Number: GXKR2010US11935

PATIENT
  Age: 58 Year
  Sex: Female

DRUGS (5)
  1. ESCITALOPRAM (NGX) [Suspect]
     Route: 065
  2. FLUOXETINE [Suspect]
     Route: 065
  3. TRAZODONE (NGX) [Suspect]
     Route: 065
  4. BUSPIRONE HCL [Concomitant]
     Route: 065
  5. TEMAZEPAM [Concomitant]
     Route: 065

REACTIONS (14)
  - APNOEA [None]
  - CARDIAC ARREST [None]
  - CARDIAC PACEMAKER INSERTION [None]
  - CARDIOVERSION [None]
  - CIRCULATORY COLLAPSE [None]
  - COMA [None]
  - ENDOTRACHEAL INTUBATION [None]
  - LONG QT SYNDROME [None]
  - LOSS OF CONSCIOUSNESS [None]
  - MALAISE [None]
  - MECHANICAL VENTILATION [None]
  - SINUS RHYTHM [None]
  - TORSADE DE POINTES [None]
  - VENTRICULAR FIBRILLATION [None]
